FAERS Safety Report 4663463-2 (Version None)
Quarter: 2005Q2

REPORT INFORMATION
  Report Type: 
  Country: None (occurrence: None)
  Receive Date: 20050513
  Receipt Date: 20050502
  Transmission Date: 20051028
  Serious: Yes (Other)
  Sender: FDA-Public Use
  Company Number: 2005069120

PATIENT
  Sex: Male

DRUGS (2)
  1. PHENYTOIN [Suspect]
     Indication: CONVULSION
     Dosage: 400 MG (200 MG, 2 IN 1 D), ORAL
     Route: 048
  2. DILANTIN [Suspect]
     Indication: CONVULSION
     Dosage: 50 MG (50 MG, 1 IN 1 D), ORAL
     Route: 048
     Dates: start: 20050401

REACTIONS (5)
  - ANAEMIA [None]
  - ANTICONVULSANT DRUG LEVEL INCREASED [None]
  - APHASIA [None]
  - DEMENTIA ALZHEIMER'S TYPE [None]
  - HAEMATOCRIT DECREASED [None]
